FAERS Safety Report 11180600 (Version 1)
Quarter: 2015Q2

REPORT INFORMATION
  Report Type: Spontaneous
  Country: US (occurrence: US)
  Receive Date: 20150611
  Receipt Date: 20150611
  Transmission Date: 20150821
  Serious: Yes (Other)
  Sender: FDA-Public Use
  Company Number: US-PFIZER INC-2015193626

PATIENT
  Age: 19 Year
  Sex: Male
  Weight: 75 kg

DRUGS (2)
  1. DILANTIN [Suspect]
     Active Substance: PHENYTOIN
     Indication: GENERALISED TONIC-CLONIC SEIZURE
     Dosage: 400 MG, DAILY [4 CAPSULES 100 MG EACH AT NIGHT]
  2. ZARONTIN [Suspect]
     Active Substance: ETHOSUXIMIDE
     Indication: PETIT MAL EPILEPSY
     Dosage: 500 MG, 2X/DAY [4 CAPSULES 250 MG EACH TWO AT DAY AND TWO IN NIGHT]

REACTIONS (2)
  - Drug ineffective [Not Recovered/Not Resolved]
  - Drug ineffective [Not Recovered/Not Resolved]

NARRATIVE: CASE EVENT DATE: 201506
